FAERS Safety Report 5973839-9 (Version None)
Quarter: 2008Q4

REPORT INFORMATION
  Report Type: 
  Country: None (occurrence: None)
  Receive Date: 20081201
  Receipt Date: 20081118
  Transmission Date: 20090506
  Serious: Yes (Disabling)
  Sender: FDA-Public Use
  Company Number: IE-ROCHE-558647

PATIENT
  Sex: Male

DRUGS (3)
  1. ROACCUTANE [Suspect]
     Indication: ACNE
     Route: 048
     Dates: start: 20080131, end: 20080228
  2. ROACCUTANE [Suspect]
     Route: 048
     Dates: start: 20080229, end: 20080309
  3. ERYTHROMYCIN [Concomitant]
     Route: 048
     Dates: start: 20080229, end: 20080306

REACTIONS (5)
  - BRAIN INJURY [None]
  - HEADACHE [None]
  - INTRACRANIAL PRESSURE INCREASED [None]
  - NAUSEA [None]
  - PARTIAL SEIZURES [None]
